FAERS Safety Report 7579554-2 (Version None)
Quarter: 2011Q2

REPORT INFORMATION
  Report Type: 
  Country: None (occurrence: None)
  Receive Date: 20110629
  Receipt Date: 20110617
  Transmission Date: 20111010
  Serious: Yes (Hospitalization)
  Sender: FDA-Public Use
  Company Number: CA-JNJFOC-20110300311

PATIENT
  Sex: Female

DRUGS (3)
  1. SIMPONI [Suspect]
     Route: 058
     Dates: start: 20100301, end: 20101201
  2. SIMPONI [Suspect]
     Indication: RHEUMATOID ARTHRITIS
     Route: 058
     Dates: start: 20110201
  3. SIMPONI [Suspect]
     Route: 058
     Dates: start: 20110512

REACTIONS (3)
  - DRUG INEFFECTIVE [None]
  - CHOLANGITIS SUPPURATIVE [None]
  - CHOLELITHIASIS [None]
